FAERS Safety Report 6122677-5 (Version None)
Quarter: 2009Q1

REPORT INFORMATION
  Report Type: 
  Country: None (occurrence: None)
  Receive Date: 20090318
  Receipt Date: 20090316
  Transmission Date: 20090719
  Serious: Yes (Life-Threatening, Hospitalization)
  Sender: FDA-Public Use
  Company Number: DE-BAYER-200911957GPV

PATIENT
  Age: 48 Year
  Sex: Male
  Weight: 82 kg

DRUGS (1)
  1. NEXAVAR [Suspect]
     Indication: ACUTE MYELOID LEUKAEMIA RECURRENT
     Route: 048
     Dates: start: 20081128, end: 20090121

REACTIONS (4)
  - EPIDERMOLYSIS [None]
  - ERYTHEMA [None]
  - GRAFT VERSUS HOST DISEASE [None]
  - MUCOSAL INFLAMMATION [None]
